FAERS Safety Report 13328790 (Version 1)
Quarter: 2017Q1

REPORT INFORMATION
  Report Type: Spontaneous
  Country: US (occurrence: US)
  Receive Date: 20170311
  Receipt Date: 20170311
  Transmission Date: 20170428
  Serious: Yes (Other)
  Sender: FDA-Public Use
  Company Number: None

PATIENT
  Age: 68 Year
  Sex: Male
  Weight: 117 kg

DRUGS (10)
  1. ATORVASTIN [Concomitant]
     Active Substance: ATORVASTATIN
  2. LISINOPRIL. [Concomitant]
     Active Substance: LISINOPRIL
  3. LEVOTHYROXINE. [Concomitant]
     Active Substance: LEVOTHYROXINE
  4. COQ10 [Concomitant]
     Active Substance: UBIDECARENONE
  5. TEMAZEPAM. [Concomitant]
     Active Substance: TEMAZEPAM
  6. TRADJENTA [Suspect]
     Active Substance: LINAGLIPTIN
     Indication: DIABETES MELLITUS
     Dosage: ?          QUANTITY:90 TABLET(S);?
     Route: 048
  7. CPAP [Concomitant]
     Active Substance: DEVICE
  8. ZETIA [Concomitant]
     Active Substance: EZETIMIBE
  9. HCTZ [Concomitant]
     Active Substance: HYDROCHLOROTHIAZIDE
  10. TESTOSTERONE. [Concomitant]
     Active Substance: TESTOSTERONE

REACTIONS (3)
  - Muscle injury [None]
  - Hyperaemia [None]
  - Muscle spasms [None]

NARRATIVE: CASE EVENT DATE: 20170110
